FAERS Safety Report 5539124-4 (Version None)
Quarter: 2007Q4

REPORT INFORMATION
  Report Type: 
  Country: None (occurrence: None)
  Receive Date: 20071208
  Receipt Date: 20070214
  Transmission Date: 20080405
  Serious: No
  Sender: FDA-Public Use
  Company Number: US-AMGEN-KDL211400

PATIENT
  Sex: Female

DRUGS (4)
  1. ENBREL [Suspect]
     Indication: RHEUMATOID ARTHRITIS
     Route: 058
     Dates: start: 20061001
  2. LEVAQUIN [Suspect]
  3. METHOTREXATE [Concomitant]
     Route: 048
     Dates: start: 20020101
  4. ARAVA [Concomitant]
     Route: 048
     Dates: start: 20020101

REACTIONS (1)
  - URINARY TRACT INFECTION [None]
